FAERS Safety Report 5334161-7 (Version None)
Quarter: 2007Q2

REPORT INFORMATION
  Report Type: 
  Country: None (occurrence: None)
  Receive Date: 20070522
  Receipt Date: 20070511
  Transmission Date: 20071010
  Serious: Yes (Disabling)
  Sender: FDA-Public Use
  Company Number: SPV1-2007-02765

PATIENT
  Age: 51 Year
  Sex: Male

DRUGS (4)
  1. PENTASA [Suspect]
     Indication: COLITIS ULCERATIVE
     Dates: start: 20020129, end: 20050114
  2. BUDESONIDE [Concomitant]
  3. DOLEX /00020001/ (PARACETAMOL) [Concomitant]
  4. BISOPROLOL FUMARATE [Concomitant]

REACTIONS (6)
  - DRUG TOXICITY [None]
  - HAEMATURIA [None]
  - KIDNEY FIBROSIS [None]
  - MALAISE [None]
  - NEPHRITIS INTERSTITIAL [None]
  - RENAL TUBULAR ATROPHY [None]
